FAERS Safety Report 8320258-6 (Version None)
Quarter: 2012Q2

REPORT INFORMATION
  Report Type: 
  Country: None (occurrence: None)
  Receive Date: 20120426
  Receipt Date: 20120426
  Transmission Date: 20120825
  Serious: Yes (Hospitalization)
  Sender: FDA-Public Use
  Company Number: None

PATIENT
  Sex: Female
  Weight: 127.3 kg

DRUGS (2)
  1. CARBOPLATIN [Suspect]
     Dosage: 798 MG
  2. TAXOL [Suspect]
     Dosage: 350 MG

REACTIONS (4)
  - PLATELET COUNT DECREASED [None]
  - HAEMOGLOBIN DECREASED [None]
  - ASTHENIA [None]
  - NEUTROPENIA [None]
